FAERS Safety Report 19047389 (Version 1)
Quarter: 2021Q1

REPORT INFORMATION
  Report Type: Spontaneous
  Country: US (occurrence: US)
  Receive Date: 20210323
  Receipt Date: 20210323
  Transmission Date: 20210420
  Serious: No
  Sender: FDA-Public Use
  Company Number: US-GW PHARMA-202103USGW01212

PATIENT

DRUGS (1)
  1. EPIDIOLEX [Suspect]
     Active Substance: CANNABIDIOL
     Indication: EPILEPSY
     Dosage: 150 MILLIGRAM, BID, THERAPY ON HOLD
     Route: 048
     Dates: start: 20201103

REACTIONS (2)
  - Seizure [Unknown]
  - Drug ineffective [Unknown]
